FAERS Safety Report 6592794-4 (Version None)
Quarter: 2010Q1

REPORT INFORMATION
  Report Type: 
  Country: None (occurrence: None)
  Receive Date: 20100212
  Receipt Date: 20100125
  Transmission Date: 20100710
  Serious: Yes (Death, Hospitalization, Other)
  Sender: FDA-Public Use
  Company Number: 0912-352

PATIENT
  Age: 73 Year
  Sex: Male
  Weight: 68.0396 kg

DRUGS (4)
  1. ARCALYST [Suspect]
     Indication: FAMILIAL COLD AUTOINFLAMMATORY SYNDROME
     Dosage: 160 MG, QWK, SUBCUTANEOUS
     Route: 058
     Dates: start: 20090801, end: 20091130
  2. TERAZOSIN HCL [Concomitant]
  3. FINASTERIDE [Concomitant]
  4. ISOSORBIDE [Concomitant]

REACTIONS (3)
  - ACCIDENT [None]
  - INFECTION [None]
  - LUNG NEOPLASM MALIGNANT [None]
